FAERS Safety Report 5835656-X (Version None)
Quarter: 2008Q3

REPORT INFORMATION
  Report Type: 
  Country: None (occurrence: None)
  Receive Date: 20080801
  Receipt Date: 20080721
  Transmission Date: 20090109
  Serious: Yes (Hospitalization)
  Sender: FDA-Public Use
  Company Number: WAES 0807USA04312

PATIENT
  Age: 52 Year
  Sex: Male
  Weight: 58.9676 kg

DRUGS (15)
  1. TAB RALTEGRAVIR POTASSIUM [Suspect]
     Dosage: 400 MG/BID/PO
     Route: 048
     Dates: start: 20080424, end: 20080718
  2. DARUNAVIR [Suspect]
     Dosage: 600 MG/BID/PO
     Route: 048
     Dates: start: 20080424, end: 20080718
  3. ETRAVIRINE [Suspect]
     Dosage: 200 MG/BID/PO
     Route: 048
     Dates: start: 20080424, end: 20080718
  4. TRUVADA [Suspect]
     Dosage: 500 MG/DAILY/PO
     Route: 048
     Dates: start: 20080424, end: 20080718
  5. RITONAVIR [Suspect]
     Dosage: 100 MG/BID/PO
     Route: 048
     Dates: start: 20080424, end: 20080718
  6. ZIDOVUDINE [Suspect]
     Dosage: 300 MG/BID/PO
     Route: 048
     Dates: start: 20080228, end: 20080718
  7. AMBIEN [Concomitant]
  8. IMODIUM A-D [Concomitant]
  9. INDERAL [Concomitant]
  10. LUNESTA [Concomitant]
  11. MEPRON [Concomitant]
  12. NEBUPENT [Concomitant]
  13. RESTORIL [Concomitant]
  14. TRICOR [Concomitant]
  15. TESTOSTERONE [Concomitant]

REACTIONS (1)
  - RHABDOMYOLYSIS [None]
